FAERS Safety Report 19077708 (Version 1)
Quarter: 2021Q1

REPORT INFORMATION
  Report Type: Spontaneous
  Country: US (occurrence: US)
  Receive Date: 20210331
  Receipt Date: 20210331
  Transmission Date: 20210420
  Serious: Yes (Death)
  Sender: FDA-Public Use
  Company Number: US-PROVEPHARM S.A.S.-2108654

PATIENT
  Age: 22 Year
  Sex: Male

DRUGS (3)
  1. METHYLENE BLUE. [Suspect]
     Active Substance: METHYLENE BLUE
     Indication: METHAEMOGLOBINAEMIA
     Route: 042
  2. NOREPINEPHRINE. [Concomitant]
     Active Substance: NOREPINEPHRINE
     Route: 065
  3. SODIUM NITRITE [Suspect]
     Active Substance: SODIUM NITRITE
     Route: 048

REACTIONS (2)
  - Drug ineffective [Fatal]
  - Inappropriate schedule of product administration [Fatal]
